FAERS Safety Report 4864855-9 (Version None)
Quarter: 2005Q4

REPORT INFORMATION
  Report Type: 
  Country: None (occurrence: None)
  Receive Date: 20051201
  Receipt Date: 20050718
  Transmission Date: 20060501
  Serious: No
  Sender: FDA-Public Use
  Company Number: 2005PV000472

PATIENT
  Age: 63 Year
  Sex: Male
  Weight: 106.1417 kg

DRUGS (16)
  1. BYETTA [Suspect]
     Indication: DIABETES MELLITUS NON-INSULIN-DEPENDENT
     Dosage: 5 MCG;SC;SC
     Route: 058
     Dates: start: 20050625
  2. LANTUS [Concomitant]
  3. GLYBURIDE AND METFORMIN HCL [Concomitant]
  4. NOVOLOG [Concomitant]
  5. HYDROCODONE BITARTRATE [Concomitant]
  6. PLAVIX [Concomitant]
  7. METOPROLOL [Concomitant]
  8. NEXIUM [Concomitant]
  9. ALLOPURINOL [Concomitant]
  10. ASPIRIN [Concomitant]
  11. METOCLOPRAMIDE [Concomitant]
  12. AVAPRO [Concomitant]
  13. LOVASTATIN [Concomitant]
  14. GABAPENTIN [Concomitant]
  15. HYDROCHLOROTHIAZIDE [Concomitant]
  16. LANTUS [Concomitant]

REACTIONS (2)
  - DECREASED APPETITE [None]
  - DRUG INEFFECTIVE [None]
